FAERS Safety Report 11048662 (Version 3)
Quarter: 2015Q2

REPORT INFORMATION
  Report Type: Report from Study
  Country: US (occurrence: US)
  Receive Date: 20150420
  Receipt Date: 20150626
  Transmission Date: 20150821
  Serious: Yes (Hospitalization, Other)
  Sender: FDA-Public Use
  Company Number: US-BIOGENIDEC-2015BI049402

PATIENT
  Sex: Female

DRUGS (1)
  1. PLEGRIDY [Suspect]
     Active Substance: PEGINTERFERON BETA-1A
     Indication: MULTIPLE SCLEROSIS
     Route: 058
     Dates: start: 20150320

REACTIONS (16)
  - Oesophageal rupture [Unknown]
  - Laryngeal injury [Unknown]
  - Neck surgery [Recovered/Resolved]
  - Emotional distress [Unknown]
  - Multiple sclerosis relapse [Not Recovered/Not Resolved]
  - Aspiration [Recovered/Resolved]
  - Optic neuritis [Recovered/Resolved]
  - Bipolar disorder [Unknown]
  - Memory impairment [Unknown]
  - Pneumonia [Recovered/Resolved]
  - Fatigue [Recovered/Resolved]
  - Hypersensitivity [Recovered/Resolved]
  - Cerebrovascular accident [Recovered/Resolved]
  - Pyrexia [Recovered/Resolved]
  - Hypersomnia [Recovered/Resolved]
  - Fear [Not Recovered/Not Resolved]

NARRATIVE: CASE EVENT DATE: 2015
